FAERS Safety Report 6973009-1 (Version None)
Quarter: 2010Q3

REPORT INFORMATION
  Report Type: 
  Country: None (occurrence: None)
  Receive Date: 20100907
  Receipt Date: 20100830
  Transmission Date: 20110219
  Serious: Yes (Hospitalization)
  Sender: FDA-Public Use
  Company Number: 2009SP035328

PATIENT
  Age: 41 Year
  Sex: Female
  Weight: 99.7913 kg

DRUGS (8)
  1. NUVARING [Suspect]
     Indication: CONTRACEPTION
     Dosage: QM, VAG
     Route: 067
     Dates: start: 20070401, end: 20071101
  2. MUTI-VITAMIN [Concomitant]
  3. ASCORBIC ACID [Concomitant]
  4. VITAMIN E [Concomitant]
  5. FISH OIL [Concomitant]
  6. FLAX SEED OIL [Concomitant]
  7. SELENIUM [Concomitant]
  8. ADVIL MIGRAINE LIQUI-GELS [Concomitant]

REACTIONS (7)
  - ATELECTASIS [None]
  - BLOOD CHOLESTEROL INCREASED [None]
  - DEEP VEIN THROMBOSIS [None]
  - IMMOBILE [None]
  - INJURY [None]
  - PLEURAL EFFUSION [None]
  - PULMONARY EMBOLISM [None]
